FAERS Safety Report 8584009-2 (Version None)
Quarter: 2012Q3

REPORT INFORMATION
  Report Type: 
  Country: None (occurrence: None)
  Receive Date: 20120810
  Receipt Date: 20120723
  Transmission Date: 20120928
  Serious: Yes (Hospitalization, Other)
  Sender: FDA-Public Use
  Company Number: US-009507513-1207USA010516

PATIENT

DRUGS (9)
  1. PANTOPRAZOLE [Suspect]
     Route: 048
  2. RAMIPRIL [Suspect]
     Route: 048
  3. METFORMIN HYDROCHLORIDE [Suspect]
     Route: 048
  4. BISOPROLOL FUMARATE [Suspect]
     Route: 048
  5. LEVOTHYROXINE SODIUM [Suspect]
     Route: 048
  6. BRILINTA [Suspect]
     Dosage: UNK
     Route: 048
  7. ZOCOR [Suspect]
     Route: 048
  8. ASPIRIN [Suspect]
     Route: 048
  9. AMLODIPINE [Suspect]
     Route: 048

REACTIONS (1)
  - ANGIOEDEMA [None]
